FAERS Safety Report 18300659 (Version 1)
Quarter: 2020Q3

REPORT INFORMATION
  Report Type: Spontaneous
  Country: US (occurrence: US)
  Receive Date: 20200923
  Receipt Date: 20200923
  Transmission Date: 20201103
  Serious: Yes (Hospitalization, Disabling)
  Sender: FDA-Public Use
  Company Number: None

PATIENT
  Age: 34 Year
  Sex: Female
  Weight: 54 kg

DRUGS (1)
  1. ESTRADIOL TRANSDERMAL SYSTEM [Suspect]
     Active Substance: ESTRADIOL
     Indication: INFERTILITY
     Dosage: ?          QUANTITY:2 PATCH(ES);OTHER FREQUENCY:EVERY OTHER DAY;?
     Route: 062
     Dates: start: 20200603, end: 20200711

REACTIONS (1)
  - Retinal vein occlusion [None]

NARRATIVE: CASE EVENT DATE: 20200711
